FAERS Safety Report 5146651-0 (Version None)
Quarter: 2006Q4

REPORT INFORMATION
  Report Type: 
  Country: None (occurrence: None)
  Receive Date: 20061109
  Receipt Date: 20061101
  Transmission Date: 20070319
  Serious: Yes (Congenital Anomaly)
  Sender: FDA-Public Use
  Company Number: US-AVENTIS-200619084US

PATIENT

DRUGS (1)
  1. LOVENOX [Suspect]
     Dosage: DOSE: UNKNOWN
     Route: 064

REACTIONS (2)
  - CEREBRAL PALSY [None]
  - DRUG EXPOSURE DURING PREGNANCY [None]
